FAERS Safety Report 9163588 (Version 1)
Quarter: 2013Q1

REPORT INFORMATION
  Report Type: Spontaneous
  Country: IT (occurrence: IT)
  Receive Date: 20130314
  Receipt Date: 20130314
  Transmission Date: 20140127
  Serious: Yes (Hospitalization)
  Sender: FDA-Public Use
  Company Number: IT-BAYER-2013-031883

PATIENT
  Age: 87 Year
  Sex: Male

DRUGS (9)
  1. CARDIOASPIRIN [Suspect]
     Dosage: 100 MG, QD
     Route: 048
     Dates: start: 20120101, end: 20130110
  2. CARDIOASPIRIN [Suspect]
     Dosage: UNK
  3. COUMADIN [Suspect]
     Dosage: 5 MG, PRN
     Route: 048
     Dates: start: 20120101, end: 20130110
  4. COUMADIN [Suspect]
     Dosage: UNK
  5. CARVEDILOL [Concomitant]
     Dosage: 6.25 MG
     Route: 048
  6. CASODEX [Concomitant]
     Dosage: UNK
     Route: 048
  7. LANOXIN [Concomitant]
     Dosage: UNK
     Route: 048
  8. SPIRIVA [Concomitant]
     Dosage: UNK
     Route: 055
  9. PEPTAZOL [Concomitant]
     Dosage: UNK
     Route: 048

REACTIONS (2)
  - Haematemesis [Unknown]
  - International normalised ratio increased [Unknown]
